FAERS Safety Report 4723679-3 (Version None)
Quarter: 2005Q3

REPORT INFORMATION
  Report Type: 
  Country: None (occurrence: None)
  Receive Date: 20050720
  Receipt Date: 20050720
  Transmission Date: 20060218
  Serious: No
  Sender: FDA-Public Use
  Company Number: None

PATIENT
  Age: 79 Year
  Sex: Male

DRUGS (4)
  1. EPTIFIBATIDE  IV [Suspect]
     Dosage: 12 MG/HR -CONTINUOUS INFUSION
     Route: 041
  2. ENOXAPARIN IV [Suspect]
     Dosage: 100 MG Q 12
  3. ASPIRIN [Suspect]
  4. CLOPIDOGREL 100 MG QD [Suspect]

REACTIONS (2)
  - GASTROINTESTINAL HAEMORRHAGE [None]
  - HAEMATEMESIS [None]
